FAERS Safety Report 5501583-0 (Version None)
Quarter: 2007Q4

REPORT INFORMATION
  Report Type: 
  Country: None (occurrence: None)
  Receive Date: 20071026
  Receipt Date: 20071026
  Transmission Date: 20080405
  Serious: Yes (Other)
  Sender: FDA-Public Use
  Company Number: None

PATIENT
  Age: 14 Year
  Sex: Male

DRUGS (2)
  1. VYVANSE [Suspect]
     Indication: TOURETTE'S DISORDER
     Dosage: 80MG QD PO
     Route: 048
     Dates: start: 20071023, end: 20071025
  2. VYVANSE [Suspect]

REACTIONS (4)
  - CONFUSIONAL STATE [None]
  - DIZZINESS [None]
  - FEELING ABNORMAL [None]
  - HALLUCINATION [None]
